FAERS Safety Report 4711771-9 (Version None)
Quarter: 2005Q3

REPORT INFORMATION
  Report Type: 
  Country: None (occurrence: None)
  Receive Date: 20050711
  Receipt Date: 20050711
  Transmission Date: 20060218
  Serious: Yes (Life-Threatening)
  Sender: FDA-Public Use
  Company Number: None

PATIENT
  Sex: Female
  Weight: 24.6 kg

DRUGS (17)
  1. CLOFARABINE [Suspect]
     Indication: LEUKAEMIA RECURRENT
     Dosage: 40 MG/M2, IV, 1 DOSE
     Route: 042
     Dates: start: 20050122
  2. ACYCLOVIR [Concomitant]
  3. VORICONOZOLE [Concomitant]
  4. CASPOFUNGIN [Concomitant]
  5. LANSOPRAZOLE [Concomitant]
  6. AMLODIPINE [Concomitant]
  7. MEGESTROL ACETATE [Concomitant]
  8. MORPHINE [Concomitant]
  9. CEFTAZIDIME [Concomitant]
  10. AZITHROMYCIN [Concomitant]
  11. POLYETHYLONE GLYCOLS [Concomitant]
  12. LORAZEPAM [Concomitant]
  13. ACETAMINOPHEN [Concomitant]
  14. DIPHENHYDRAMINE HCL [Concomitant]
  15. GENTAMICIN [Concomitant]
  16. VANCOMYCIN [Concomitant]
  17. FUROSEMIDE [Concomitant]

REACTIONS (6)
  - BLOOD PRESSURE ABNORMAL [None]
  - CAPILLARY LEAK SYNDROME [None]
  - GENERALISED OEDEMA [None]
  - PULMONARY OEDEMA [None]
  - RENAL FAILURE [None]
  - SHOCK [None]
